APPROVED DRUG PRODUCT: SYMBRAVO
Active Ingredient: MELOXICAM; RIZATRIPTAN BENZOATE
Strength: 20MG;EQ 10MG BASE
Dosage Form/Route: TABLET;ORAL
Application: N215431 | Product #001
Applicant: AXSOME THERAPEUTICS INC
Approved: Jan 30, 2025 | RLD: Yes | RS: Yes | Type: RX

PATENTS:
Patent 10702535 | Expires: Apr 11, 2036
Patent 10702602 | Expires: Apr 11, 2036
Patent 11013806 | Expires: Apr 11, 2036
Patent 10722583 | Expires: Apr 11, 2036
Patent 12128052 | Expires: May 28, 2040
Patent 10987358 | Expires: Apr 11, 2036
Patent 10729696 | Expires: Apr 11, 2036
Patent 10688102 | Expires: Apr 11, 2036
Patent 11865117 | Expires: Apr 11, 2036
Patent 10729697 | Expires: Apr 11, 2036
Patent 11617755 | Expires: Apr 11, 2036
Patent 10729773 | Expires: Apr 11, 2036
Patent 10517950 | Expires: Apr 11, 2036
Patent 11426414 | Expires: Apr 11, 2036
Patent 9821075 | Expires: Apr 11, 2036
Patent 10029010 | Expires: Apr 11, 2036
Patent 10137131 | Expires: Apr 11, 2036
Patent 10195278 | Expires: Apr 11, 2036
Patent 10695429 | Expires: Apr 11, 2036
Patent 10265324 | Expires: Apr 11, 2036
Patent 11369684 | Expires: Apr 11, 2036
Patent 10695430 | Expires: Apr 11, 2036
Patent 10363312 | Expires: Apr 11, 2036
Patent 10688185 | Expires: Apr 11, 2036
Patent 10653777 | Expires: Apr 11, 2036
Patent 10583144 | Expires: Apr 11, 2036
Patent 11331323 | Expires: Apr 11, 2036
Patent 10561664 | Expires: Apr 11, 2036
Patent 10537642 | Expires: Apr 11, 2036
Patent 10369224 | Expires: Apr 11, 2036
Patent 10532101 | Expires: Apr 11, 2036
Patent 11285213 | Expires: Apr 11, 2036
Patent 10426839 | Expires: Apr 11, 2036
Patent 10471014 | Expires: Apr 11, 2036
Patent 11219626 | Expires: Apr 11, 2036
Patent 10471069 | Expires: Apr 11, 2036
Patent 10512692 | Expires: Apr 11, 2036
Patent 11207328 | Expires: Apr 11, 2036
Patent 10512693 | Expires: Apr 11, 2036
Patent 11135295 | Expires: Apr 11, 2036
Patent 11045549 | Expires: Apr 11, 2036
Patent 11020483 | Expires: Apr 11, 2036
Patent 11826370 | Expires: Apr 11, 2036
Patent 10940153 | Expires: Apr 11, 2036
Patent 11602563 | Expires: Apr 11, 2036
Patent 11806354 | Expires: Apr 11, 2036
Patent 11510927 | Expires: Apr 11, 2036
Patent 10933137 | Expires: Apr 11, 2036
Patent 11504429 | Expires: Apr 11, 2036
Patent 11471464 | Expires: Apr 11, 2036
Patent 10933136 | Expires: Apr 11, 2036
Patent 11801250 | Expires: Apr 11, 2036
Patent 10799588 | Expires: Apr 11, 2036
Patent 10780165 | Expires: Apr 11, 2036
Patent 10821181 | Expires: Apr 11, 2036
Patent 11759522 | Expires: Apr 11, 2036
Patent 10758618 | Expires: Apr 11, 2036
Patent 10918722 | Expires: Apr 11, 2036
Patent 11738085 | Expires: Apr 11, 2036
Patent 11013805 | Expires: Apr 11, 2036
Patent 11712441 | Expires: Apr 11, 2036
Patent 10905693 | Expires: Apr 11, 2036
Patent 11628173 | Expires: Apr 11, 2036
Patent 10894053 | Expires: Apr 11, 2036
Patent 11617791 | Expires: Apr 11, 2036
Patent 10821182 | Expires: Apr 11, 2036
Patent 11617756 | Expires: Apr 11, 2036
Patent 11607456 | Expires: Apr 11, 2036
Patent 11571428 | Expires: Apr 11, 2036
Patent 11471465 | Expires: Apr 11, 2036
Patent 10780166 | Expires: Apr 11, 2036
Patent 10758617 | Expires: Apr 11, 2036
Patent 12472257 | Expires: May 18, 2038
Patent 12472256 | Expires: May 18, 2038
Patent 12485176 | Expires: Apr 11, 2036
Patent 12370196 | Expires: Dec 29, 2041
Patent 10058614 | Expires: Apr 11, 2036
Patent 10463736 | Expires: Apr 11, 2036
Patent 12472258 | Expires: May 18, 2038

EXCLUSIVITY:
Code: NP | Date: Jan 30, 2028